FAERS Safety Report 9983655 (Version 1)
Quarter: 2014Q1

REPORT INFORMATION
  Report Type: Spontaneous
  Country: US (occurrence: US)
  Receive Date: 20140307
  Receipt Date: 20140307
  Transmission Date: 20141002
  Serious: No
  Sender: FDA-Public Use
  Company Number: US-TEVA-455125USA

PATIENT
  Sex: Female

DRUGS (3)
  1. ETODOLAC [Suspect]
     Indication: RHEUMATOID ARTHRITIS
     Dosage: 800 MILLIGRAM DAILY;
  2. ETODOLAC [Suspect]
     Indication: OSTEOARTHRITIS
  3. ETODOLAC [Suspect]
     Indication: FIBROMYALGIA

REACTIONS (20)
  - Drug ineffective [Unknown]
  - Pain [Unknown]
  - Hyperhidrosis [Unknown]
  - Feeling hot [Unknown]
  - Swelling face [Unknown]
  - Erythema [Unknown]
  - Nasal congestion [Unknown]
  - Wheezing [Unknown]
  - Dyspnoea [Unknown]
  - Abdominal pain upper [Unknown]
  - Decreased appetite [Unknown]
  - Abdominal distension [Unknown]
  - Dyspepsia [Unknown]
  - Bone pain [Unknown]
  - Gait disturbance [Unknown]
  - Chest pain [Unknown]
  - Cough [Unknown]
  - Dysgeusia [Unknown]
  - Fatigue [Unknown]
  - Medication residue present [Unknown]
